FAERS Safety Report 9798475 (Version 3)
Quarter: 2015Q4

REPORT INFORMATION
  Report Type: Spontaneous
  Country: US (occurrence: US)
  Receive Date: 20140106
  Receipt Date: 20151208
  Transmission Date: 20160305
  Serious: Yes (Death)
  Sender: FDA-Public Use
  Company Number: US-SA-2014SA000937

PATIENT
  Age: 79 Year
  Sex: Male

DRUGS (1)
  1. LANTUS [Suspect]
     Active Substance: INSULIN GLARGINE
     Indication: TYPE 2 DIABETES MELLITUS
     Dosage: DOSE:80 UNIT(S)
     Route: 051
     Dates: end: 20131227

REACTIONS (6)
  - Cardiac failure chronic [Fatal]
  - Acute myocardial infarction [Fatal]
  - Renal disorder [Fatal]
  - Liver injury [Fatal]
  - Coronary artery disease [Fatal]
  - Myocardial infarction [Fatal]

NARRATIVE: CASE EVENT DATE: 20131227
